FAERS Safety Report 15543466 (Version 1)
Quarter: 2018Q4

REPORT INFORMATION
  Report Type: Spontaneous
  Country: US (occurrence: US)
  Receive Date: 20181023
  Receipt Date: 20181023
  Transmission Date: 20190205
  Serious: Yes (Other)
  Sender: FDA-Public Use
  Company Number: US-NAPPMUNDI-USA-2018-0143624

PATIENT
  Sex: Male

DRUGS (4)
  1. OXYCODONE HYDROCHLORIDE (SIMILAR TO NDA 22-272) [Suspect]
     Active Substance: OXYCODONE HYDROCHLORIDE
     Dosage: (2 X 10 MG) 20 MG, UNK
     Route: 048
  2. MARIJUANA [Suspect]
     Active Substance: CANNABIS SATIVA SUBSP. INDICA TOP
     Indication: DRUG ABUSE
     Dosage: UNK
     Route: 065
  3. OXYCODONE HYDROCHLORIDE (SIMILAR TO NDA 22-272) [Suspect]
     Active Substance: OXYCODONE HYDROCHLORIDE
     Indication: PROCEDURAL PAIN
     Dosage: 40 MG, UNK
     Route: 048
  4. OXYCODONE HYDROCHLORIDE (SIMILAR TO NDA 22-272) [Suspect]
     Active Substance: OXYCODONE HYDROCHLORIDE
     Dosage: (4 X 10 MG) 40 MG, UNK
     Route: 048

REACTIONS (15)
  - Drug dependence [Recovering/Resolving]
  - Chills [Unknown]
  - Vomiting [Unknown]
  - Feeling abnormal [Unknown]
  - Petechiae [Unknown]
  - Lacrimation increased [Unknown]
  - Euphoric mood [Unknown]
  - Hyperhidrosis [Unknown]
  - Joint swelling [Unknown]
  - Drug tolerance [Unknown]
  - Arthralgia [Unknown]
  - Drug abuse [Unknown]
  - Glassy eyes [Unknown]
  - Pain [Unknown]
  - Headache [Unknown]
